FAERS Safety Report 16555830 (Version 1)
Quarter: 2019Q3

REPORT INFORMATION
  Report Type: Spontaneous
  Country: JP (occurrence: JP)
  Receive Date: 20190710
  Receipt Date: 20190710
  Transmission Date: 20191004
  Serious: Yes (Hospitalization)
  Sender: FDA-Public Use
  Company Number: JP-ALLERGAN-1927398US

PATIENT
  Sex: Male

DRUGS (2)
  1. DIURETIC MEDICATION [Concomitant]
  2. LINACLOTIDE - BP [Suspect]
     Active Substance: LINACLOTIDE
     Indication: CONSTIPATION
     Dosage: 0.5 MG/DAY, UNKNOWN FREQUENCY
     Route: 048

REACTIONS (3)
  - Dehydration [Unknown]
  - Diarrhoea [Recovered/Resolved]
  - Blood potassium abnormal [Unknown]
